FAERS Safety Report 7676079-0 (Version None)
Quarter: 2011Q3

REPORT INFORMATION
  Report Type: 
  Country: None (occurrence: None)
  Receive Date: 20110811
  Receipt Date: 20110805
  Transmission Date: 20111222
  Serious: Yes (Death, Hospitalization)
  Sender: FDA-Public Use
  Company Number: FR-BRISTOL-MYERS SQUIBB COMPANY-15918949

PATIENT
  Age: 60 Year
  Sex: Male

DRUGS (3)
  1. CETUXIMAB [Suspect]
     Indication: OESOPHAGEAL CARCINOMA
     Dosage: RECENT INFUSION ON 05NOV10.
     Route: 042
     Dates: start: 20100927, end: 20101105
  2. CISPLATIN [Suspect]
     Indication: OESOPHAGEAL CARCINOMA
     Dosage: RECENT INFUSION ON 05NOV10.
     Route: 042
     Dates: start: 20101004, end: 20101105
  3. FLUOROURACIL [Suspect]
     Indication: OESOPHAGEAL CARCINOMA
     Dosage: RECENT INFUSION ON 05NOV10.
     Route: 042
     Dates: start: 20101004, end: 20101105

REACTIONS (7)
  - MEDIASTINAL HAEMORRHAGE [None]
  - POST PROCEDURAL COMPLICATION [None]
  - GASTRIC FISTULA [None]
  - PROCEDURAL COMPLICATION [None]
  - RESPIRATORY DISTRESS [None]
  - SHOCK [None]
  - PNEUMONIA [None]
